FAERS Safety Report 6132577-2 (Version None)
Quarter: 2009Q1

REPORT INFORMATION
  Report Type: 
  Country: None (occurrence: None)
  Receive Date: 20090324
  Receipt Date: 20090310
  Transmission Date: 20090719
  Serious: Yes (Hospitalization)
  Sender: FDA-Public Use
  Company Number: 2006001198

PATIENT
  Age: 61 Year
  Sex: Male

DRUGS (1)
  1. ERLOTINIB(ERLOTINIB HCL) (TABLET) (ERLOTINIB) [Suspect]
     Indication: NON-SMALL CELL LUNG CANCER
     Dosage: 150 MG QD, ORAL
     Route: 048
     Dates: start: 20060302

REACTIONS (2)
  - METASTASES TO SPINE [None]
  - PARAPLEGIA [None]
